FAERS Safety Report 6248236-1 (Version None)
Quarter: 2009Q2

REPORT INFORMATION
  Report Type: 
  Country: None (occurrence: None)
  Receive Date: 20090629
  Receipt Date: 20090617
  Transmission Date: 20091009
  Serious: Yes (Hospitalization)
  Sender: FDA-Public Use
  Company Number: GB-JNJFOC-20090607233

PATIENT
  Age: 21 Year
  Sex: Male

DRUGS (2)
  1. REMICADE [Suspect]
     Route: 042
  2. REMICADE [Suspect]
     Indication: CROHN'S DISEASE
     Dosage: STARTED ON INFLIXIMAB ^A FEW YEARS AGO^
     Route: 042

REACTIONS (2)
  - INFUSION RELATED REACTION [None]
  - SPINAL CORD INFARCTION [None]
